FAERS Safety Report 25155068 (Version 2)
Quarter: 2025Q2

REPORT INFORMATION
  Report Type: Spontaneous
  Country: IT (occurrence: IT)
  Receive Date: 20250403
  Receipt Date: 20250429
  Transmission Date: 20250717
  Serious: Yes (Other)
  Sender: MYLAN
  Company Number: None

PATIENT
  Age: 76 Year
  Sex: Male

DRUGS (68)
  1. NORVASC [Interacting]
     Active Substance: AMLODIPINE BESYLATE
     Indication: Product used for unknown indication
     Dosage: 1 DOSAGE FORM, QD (1 TABLET AT 8 A.M) (5 MG)
     Dates: start: 20241205, end: 20250303
  2. NORVASC [Interacting]
     Active Substance: AMLODIPINE BESYLATE
     Dosage: 1 DOSAGE FORM, QD (1 TABLET AT 8 A.M) (5 MG)
     Route: 048
     Dates: start: 20241205, end: 20250303
  3. NORVASC [Interacting]
     Active Substance: AMLODIPINE BESYLATE
     Dosage: 1 DOSAGE FORM, QD (1 TABLET AT 8 A.M) (5 MG)
     Route: 048
     Dates: start: 20241205, end: 20250303
  4. NORVASC [Interacting]
     Active Substance: AMLODIPINE BESYLATE
     Dosage: 1 DOSAGE FORM, QD (1 TABLET AT 8 A.M) (5 MG)
     Dates: start: 20241205, end: 20250303
  5. TRAZODONE HYDROCHLORIDE [Interacting]
     Active Substance: TRAZODONE HYDROCHLORIDE
     Indication: Product used for unknown indication
     Dosage: 1 DOSAGE FORM, QD (1 TABLET AT 8 P.M.) (50 MG)
     Dates: start: 20240109, end: 20250303
  6. TRAZODONE HYDROCHLORIDE [Interacting]
     Active Substance: TRAZODONE HYDROCHLORIDE
     Dosage: 1 DOSAGE FORM, QD (1 TABLET AT 8 P.M.) (50 MG)
     Route: 048
     Dates: start: 20240109, end: 20250303
  7. TRAZODONE HYDROCHLORIDE [Interacting]
     Active Substance: TRAZODONE HYDROCHLORIDE
     Dosage: 1 DOSAGE FORM, QD (1 TABLET AT 8 P.M.) (50 MG)
     Route: 048
     Dates: start: 20240109, end: 20250303
  8. TRAZODONE HYDROCHLORIDE [Interacting]
     Active Substance: TRAZODONE HYDROCHLORIDE
     Dosage: 1 DOSAGE FORM, QD (1 TABLET AT 8 P.M.) (50 MG)
     Dates: start: 20240109, end: 20250303
  9. SELEGILINE HYDROCHLORIDE [Interacting]
     Active Substance: SELEGILINE HYDROCHLORIDE
     Indication: Product used for unknown indication
     Dosage: 2 DOSAGE FORM, QD (2 TABLET AT 12) (5 MG)
     Dates: start: 20240109
  10. SELEGILINE HYDROCHLORIDE [Interacting]
     Active Substance: SELEGILINE HYDROCHLORIDE
     Dosage: 2 DOSAGE FORM, QD (2 TABLET AT 12) (5 MG)
     Route: 048
     Dates: start: 20240109
  11. SELEGILINE HYDROCHLORIDE [Interacting]
     Active Substance: SELEGILINE HYDROCHLORIDE
     Dosage: 2 DOSAGE FORM, QD (2 TABLET AT 12) (5 MG)
     Route: 048
     Dates: start: 20240109
  12. SELEGILINE HYDROCHLORIDE [Interacting]
     Active Substance: SELEGILINE HYDROCHLORIDE
     Dosage: 2 DOSAGE FORM, QD (2 TABLET AT 12) (5 MG)
     Dates: start: 20240109
  13. ERYTHROPOIETIN [Concomitant]
     Active Substance: ERYTHROPOIETIN
  14. ERYTHROPOIETIN [Concomitant]
     Active Substance: ERYTHROPOIETIN
     Route: 058
  15. ERYTHROPOIETIN [Concomitant]
     Active Substance: ERYTHROPOIETIN
     Route: 058
  16. ERYTHROPOIETIN [Concomitant]
     Active Substance: ERYTHROPOIETIN
  17. FINASTERIDE [Concomitant]
     Active Substance: FINASTERIDE
     Dosage: 5 MILLIGRAM, QD (FINASTERIDE 5MG AT 8 A.M.)
     Dates: start: 20240109
  18. FINASTERIDE [Concomitant]
     Active Substance: FINASTERIDE
     Dosage: 5 MILLIGRAM, QD (FINASTERIDE 5MG AT 8 A.M.)
     Route: 048
     Dates: start: 20240109
  19. FINASTERIDE [Concomitant]
     Active Substance: FINASTERIDE
     Dosage: 5 MILLIGRAM, QD (FINASTERIDE 5MG AT 8 A.M.)
     Route: 048
     Dates: start: 20240109
  20. FINASTERIDE [Concomitant]
     Active Substance: FINASTERIDE
     Dosage: 5 MILLIGRAM, QD (FINASTERIDE 5MG AT 8 A.M.)
     Dates: start: 20240109
  21. Calcio carbonato [Concomitant]
     Dosage: 1 DOSAGE FORM, QD (1 TABLET AT 8 A.M.) (500 MG)
     Dates: start: 20250227
  22. Calcio carbonato [Concomitant]
     Dosage: 1 DOSAGE FORM, QD (1 TABLET AT 8 A.M.) (500 MG)
     Route: 048
     Dates: start: 20250227
  23. Calcio carbonato [Concomitant]
     Dosage: 1 DOSAGE FORM, QD (1 TABLET AT 8 A.M.) (500 MG)
     Route: 048
     Dates: start: 20250227
  24. Calcio carbonato [Concomitant]
     Dosage: 1 DOSAGE FORM, QD (1 TABLET AT 8 A.M.) (500 MG)
     Dates: start: 20250227
  25. MEDROL [Concomitant]
     Active Substance: METHYLPREDNISOLONE
     Dosage: 1 DOSAGE FORM, QD (1 TABLET AT 8 A.M.) (16 MG)
  26. MEDROL [Concomitant]
     Active Substance: METHYLPREDNISOLONE
     Dosage: 1 DOSAGE FORM, QD (1 TABLET AT 8 A.M.) (16 MG)
     Route: 048
  27. MEDROL [Concomitant]
     Active Substance: METHYLPREDNISOLONE
     Dosage: 1 DOSAGE FORM, QD (1 TABLET AT 8 A.M.) (16 MG)
     Route: 048
  28. MEDROL [Concomitant]
     Active Substance: METHYLPREDNISOLONE
     Dosage: 1 DOSAGE FORM, QD (1 TABLET AT 8 A.M.) (16 MG)
  29. PANTOPRAZOLE SODIUM [Concomitant]
     Active Substance: PANTOPRAZOLE SODIUM
     Dosage: 1 DOSAGE FORM, QD (1 TABLET AT 8 A.M.) (20 MG)
     Dates: start: 20240109
  30. PANTOPRAZOLE SODIUM [Concomitant]
     Active Substance: PANTOPRAZOLE SODIUM
     Dosage: 1 DOSAGE FORM, QD (1 TABLET AT 8 A.M.) (20 MG)
     Route: 048
     Dates: start: 20240109
  31. PANTOPRAZOLE SODIUM [Concomitant]
     Active Substance: PANTOPRAZOLE SODIUM
     Dosage: 1 DOSAGE FORM, QD (1 TABLET AT 8 A.M.) (20 MG)
     Route: 048
     Dates: start: 20240109
  32. PANTOPRAZOLE SODIUM [Concomitant]
     Active Substance: PANTOPRAZOLE SODIUM
     Dosage: 1 DOSAGE FORM, QD (1 TABLET AT 8 A.M.) (20 MG)
     Dates: start: 20240109
  33. DEXTROSE [Concomitant]
     Active Substance: DEXTROSE MONOHYDRATE
  34. DEXTROSE [Concomitant]
     Active Substance: DEXTROSE MONOHYDRATE
     Route: 065
  35. DEXTROSE [Concomitant]
     Active Substance: DEXTROSE MONOHYDRATE
     Route: 065
  36. DEXTROSE [Concomitant]
     Active Substance: DEXTROSE MONOHYDRATE
  37. Folina [Concomitant]
  38. Folina [Concomitant]
     Route: 048
  39. Folina [Concomitant]
     Route: 048
  40. Folina [Concomitant]
  41. HEPARIN CALCIUM [Concomitant]
     Active Substance: HEPARIN CALCIUM
  42. HEPARIN CALCIUM [Concomitant]
     Active Substance: HEPARIN CALCIUM
     Route: 058
  43. HEPARIN CALCIUM [Concomitant]
     Active Substance: HEPARIN CALCIUM
     Route: 058
  44. HEPARIN CALCIUM [Concomitant]
     Active Substance: HEPARIN CALCIUM
  45. GABAPENTIN [Concomitant]
     Active Substance: GABAPENTIN
     Dosage: 1 DOSAGE FORM, BID (1 CAPSULE AT 8 A.M., 1 CAPSULE AT 6 P.M.) (400 MG)
     Dates: start: 20240111
  46. GABAPENTIN [Concomitant]
     Active Substance: GABAPENTIN
     Dosage: 1 DOSAGE FORM, BID (1 CAPSULE AT 8 A.M., 1 CAPSULE AT 6 P.M.) (400 MG)
     Route: 048
     Dates: start: 20240111
  47. GABAPENTIN [Concomitant]
     Active Substance: GABAPENTIN
     Dosage: 1 DOSAGE FORM, BID (1 CAPSULE AT 8 A.M., 1 CAPSULE AT 6 P.M.) (400 MG)
     Route: 048
     Dates: start: 20240111
  48. GABAPENTIN [Concomitant]
     Active Substance: GABAPENTIN
     Dosage: 1 DOSAGE FORM, BID (1 CAPSULE AT 8 A.M., 1 CAPSULE AT 6 P.M.) (400 MG)
     Dates: start: 20240111
  49. POLYETHYLENE GLYCOL 3350\POTASSIUM CHLORIDE\SODIUM BICARBONATE\SODIUM [Concomitant]
     Active Substance: POLYETHYLENE GLYCOL 3350\POTASSIUM CHLORIDE\SODIUM BICARBONATE\SODIUM CHLORIDE
     Dosage: 1 DOSAGE FORM, QD (1 BST AT 10 P.M.) (13.8 MG)
  50. POLYETHYLENE GLYCOL 3350\POTASSIUM CHLORIDE\SODIUM BICARBONATE\SODIUM [Concomitant]
     Active Substance: POLYETHYLENE GLYCOL 3350\POTASSIUM CHLORIDE\SODIUM BICARBONATE\SODIUM CHLORIDE
     Dosage: 1 DOSAGE FORM, QD (1 BST AT 10 P.M.) (13.8 MG)
     Route: 048
  51. POLYETHYLENE GLYCOL 3350\POTASSIUM CHLORIDE\SODIUM BICARBONATE\SODIUM [Concomitant]
     Active Substance: POLYETHYLENE GLYCOL 3350\POTASSIUM CHLORIDE\SODIUM BICARBONATE\SODIUM CHLORIDE
     Dosage: 1 DOSAGE FORM, QD (1 BST AT 10 P.M.) (13.8 MG)
     Route: 048
  52. POLYETHYLENE GLYCOL 3350\POTASSIUM CHLORIDE\SODIUM BICARBONATE\SODIUM [Concomitant]
     Active Substance: POLYETHYLENE GLYCOL 3350\POTASSIUM CHLORIDE\SODIUM BICARBONATE\SODIUM CHLORIDE
     Dosage: 1 DOSAGE FORM, QD (1 BST AT 10 P.M.) (13.8 MG)
  53. CLOPIDOGREL [Concomitant]
     Active Substance: CLOPIDOGREL BISULFATE
     Dosage: 1 DOSAGE FORM, QD (1 TABLET AT 12) (75 MG)
     Dates: start: 20240109
  54. CLOPIDOGREL [Concomitant]
     Active Substance: CLOPIDOGREL BISULFATE
     Dosage: 1 DOSAGE FORM, QD (1 TABLET AT 12) (75 MG)
     Route: 048
     Dates: start: 20240109
  55. CLOPIDOGREL [Concomitant]
     Active Substance: CLOPIDOGREL BISULFATE
     Dosage: 1 DOSAGE FORM, QD (1 TABLET AT 12) (75 MG)
     Route: 048
     Dates: start: 20240109
  56. CLOPIDOGREL [Concomitant]
     Active Substance: CLOPIDOGREL BISULFATE
     Dosage: 1 DOSAGE FORM, QD (1 TABLET AT 12) (75 MG)
     Dates: start: 20240109
  57. ROCALTROL [Concomitant]
     Active Substance: CALCITRIOL
  58. ROCALTROL [Concomitant]
     Active Substance: CALCITRIOL
     Route: 048
  59. ROCALTROL [Concomitant]
     Active Substance: CALCITRIOL
     Route: 048
  60. ROCALTROL [Concomitant]
     Active Substance: CALCITRIOL
  61. CLOZAPINE [Concomitant]
     Active Substance: CLOZAPINE
     Dosage: 1 DOSAGE FORM, QD (1 TABLET AT 4 P.M.) (25 MG)
     Dates: start: 20240109
  62. CLOZAPINE [Concomitant]
     Active Substance: CLOZAPINE
     Dosage: 1 DOSAGE FORM, QD (1 TABLET AT 4 P.M.) (25 MG)
     Route: 048
     Dates: start: 20240109
  63. CLOZAPINE [Concomitant]
     Active Substance: CLOZAPINE
     Dosage: 1 DOSAGE FORM, QD (1 TABLET AT 4 P.M.) (25 MG)
     Route: 048
     Dates: start: 20240109
  64. CLOZAPINE [Concomitant]
     Active Substance: CLOZAPINE
     Dosage: 1 DOSAGE FORM, QD (1 TABLET AT 4 P.M.) (25 MG)
     Dates: start: 20240109
  65. ALFUZOSIN HYDROCHLORIDE [Concomitant]
     Active Substance: ALFUZOSIN HYDROCHLORIDE
     Dosage: 1 DOSAGE FORM, QD (1 TABLET AT 8 P.M.) (10 MG)
     Dates: start: 20240210
  66. ALFUZOSIN HYDROCHLORIDE [Concomitant]
     Active Substance: ALFUZOSIN HYDROCHLORIDE
     Dosage: 1 DOSAGE FORM, QD (1 TABLET AT 8 P.M.) (10 MG)
     Route: 048
     Dates: start: 20240210
  67. ALFUZOSIN HYDROCHLORIDE [Concomitant]
     Active Substance: ALFUZOSIN HYDROCHLORIDE
     Dosage: 1 DOSAGE FORM, QD (1 TABLET AT 8 P.M.) (10 MG)
     Route: 048
     Dates: start: 20240210
  68. ALFUZOSIN HYDROCHLORIDE [Concomitant]
     Active Substance: ALFUZOSIN HYDROCHLORIDE
     Dosage: 1 DOSAGE FORM, QD (1 TABLET AT 8 P.M.) (10 MG)
     Dates: start: 20240210

REACTIONS (3)
  - Delirium [Recovered/Resolved]
  - Hypotension [Recovered/Resolved]
  - Drug interaction [Recovered/Resolved]

NARRATIVE: CASE EVENT DATE: 20250225
